FAERS Safety Report 21550092 (Version 4)
Quarter: 2022Q4

REPORT INFORMATION
  Report Type: Spontaneous
  Country: JP (occurrence: JP)
  Receive Date: 20221103
  Receipt Date: 20221116
  Transmission Date: 20230112
  Serious: Yes (Death)
  Sender: FDA-Public Use
  Company Number: JP-002147023-NVSC2022JP247791

PATIENT
  Age: 68 Year
  Sex: Female

DRUGS (4)
  1. ETOPOSIDE [Suspect]
     Active Substance: ETOPOSIDE
     Indication: Product used for unknown indication
     Dosage: UNK (SALVAGE CHEMOTHERAPY)
     Route: 065
     Dates: start: 202111
  2. DECADRON (DEXAMETHASONE SODIUM PHOSPHATE) [Suspect]
     Active Substance: DEXAMETHASONE SODIUM PHOSPHATE
     Indication: Plasma cell myeloma
     Dosage: UNK (SALVAGE CHEMOTHERAPY)
     Route: 065
     Dates: start: 202111
  3. CARBOPLATIN [Suspect]
     Active Substance: CARBOPLATIN
     Indication: Plasma cell myeloma
     Dosage: UNK (SALVAGE CHEMOTHERAPY)
     Route: 065
     Dates: start: 202111
  4. IFOSFAMIDE [Suspect]
     Active Substance: IFOSFAMIDE
     Indication: Plasma cell myeloma
     Dosage: UNK (SALVAGE CHEMOTHERAPY)
     Route: 065
     Dates: start: 202111

REACTIONS (3)
  - Clostridial sepsis [Fatal]
  - Intravascular haemolysis [Fatal]
  - Product use in unapproved indication [Unknown]
